FAERS Safety Report 13642331 (Version 7)
Quarter: 2018Q2

REPORT INFORMATION
  Report Type: Spontaneous
  Country: NL (occurrence: NL)
  Receive Date: 20170612
  Receipt Date: 20180402
  Transmission Date: 20180711
  Serious: Yes (Hospitalization, Disabling, Other)
  Sender: FDA-Public Use
  Company Number: NL-PFIZER INC-2017247231

PATIENT
  Age: 58 Year
  Sex: Male

DRUGS (6)
  1. ROPIVACAINE [Suspect]
     Active Substance: ROPIVACAINE
     Dosage: 60 MG, UNK
     Route: 008
  2. SUFENTANIL [Suspect]
     Active Substance: SUFENTANIL
     Dosage: 4 UG, HOURLY
  3. ROPIVACAINE [Suspect]
     Active Substance: ROPIVACAINE
     Dosage: 16 MG, HOURLY
  4. SUFENTANIL [Suspect]
     Active Substance: SUFENTANIL
     Indication: EPIDURAL ANAESTHESIA
     Dosage: 15 MG, UNK
     Route: 008
  5. PROPOFOL. [Suspect]
     Active Substance: PROPOFOL
     Indication: GENERAL ANAESTHESIA
     Dosage: 1622 MG, (TOTAL DOSE)
     Route: 008
  6. REMIFENTANIL [Suspect]
     Active Substance: REMIFENTANIL
     Indication: EPIDURAL ANAESTHESIA
     Dosage: 2.765 MG, UNK
     Route: 042

REACTIONS (1)
  - Priapism [Recovered/Resolved with Sequelae]
